FAERS Safety Report 5148947-5 (Version None)
Quarter: 2006Q4

REPORT INFORMATION
  Report Type: 
  Country: None (occurrence: None)
  Receive Date: 20061113
  Receipt Date: 20061018
  Transmission Date: 20070319
  Serious: Yes (Life-Threatening, Hospitalization, Other)
  Sender: FDA-Public Use
  Company Number: PHBS2006ZA16290

PATIENT
  Age: 60 Year
  Sex: Male
  Weight: 89 kg

DRUGS (2)
  1. DICLOFENAC [Suspect]
     Indication: GOUT
     Dosage: 150 MG/DAY
     Route: 048
  2. DICLOFENAC [Suspect]
     Route: 030

REACTIONS (3)
  - CIRCULATORY COLLAPSE [None]
  - SWELLING [None]
  - URTICARIA [None]
